FAERS Safety Report 6747932-7 (Version None)
Quarter: 2010Q2

REPORT INFORMATION
  Report Type: 
  Country: None (occurrence: None)
  Receive Date: 20100528
  Receipt Date: 20100526
  Transmission Date: 20101027
  Serious: Yes (Death, Other)
  Sender: FDA-Public Use
  Company Number: US-ELI_LILLY_AND_COMPANY-US201005004878

PATIENT
  Sex: Female
  Weight: 53.061 kg

DRUGS (4)
  1. GEMZAR [Suspect]
     Indication: BREAST CANCER METASTATIC
     Dosage: 1450 D/F, EVERY TWO WEEKS
     Dates: start: 20091022, end: 20100422
  2. ZOMETA [Concomitant]
  3. VITAMIN B-12 [Concomitant]
  4. PROCRIT [Concomitant]

REACTIONS (2)
  - DEATH [None]
  - MALIGNANT NEOPLASM PROGRESSION [None]
